FAERS Safety Report 8600571-5 (Version None)
Quarter: 2012Q3

REPORT INFORMATION
  Report Type: 
  Country: None (occurrence: None)
  Receive Date: 20120803
  Receipt Date: 20120720
  Transmission Date: 20120928
  Serious: Yes (Other)
  Sender: FDA-Public Use
  Company Number: 2012-01128

PATIENT
  Age: 78 Year
  Sex: Female

DRUGS (3)
  1. LOSARTAN POTASSIUM [Suspect]
     Indication: HYPERTENSION
     Dosage: 12.5 MG, ORAL
     Route: 048
     Dates: start: 20120627, end: 20120630
  2. BISOPROLOL FUMARATE [Concomitant]
  3. ASPIRIN [Concomitant]

REACTIONS (4)
  - PAIN [None]
  - HEADACHE [None]
  - SKIN DISCOLOURATION [None]
  - RENAL PAIN [None]
